FAERS Safety Report 5902291-4 (Version None)
Quarter: 2008Q3

REPORT INFORMATION
  Report Type: 
  Country: None (occurrence: None)
  Receive Date: 20080929
  Receipt Date: 20080829
  Transmission Date: 20090109
  Serious: No
  Sender: FDA-Public Use
  Company Number: US-BAUSCH-2008BL003768

PATIENT
  Age: 33 Year
  Sex: Female

DRUGS (3)
  1. ALAWAY [Suspect]
     Indication: EYE ALLERGY
     Route: 047
     Dates: start: 20080826
  2. ALAWAY [Suspect]
     Indication: EYE PRURITUS
     Route: 047
     Dates: start: 20080826
  3. MULTI-VITAMINS [Concomitant]

REACTIONS (2)
  - CONDITION AGGRAVATED [None]
  - EYE PRURITUS [None]
